FAERS Safety Report 17991345 (Version 1)
Quarter: 2020Q3

REPORT INFORMATION
  Report Type: Spontaneous
  Country: ES (occurrence: ES)
  Receive Date: 20200707
  Receipt Date: 20200707
  Transmission Date: 20201103
  Serious: Yes (Hospitalization)
  Sender: FDA-Public Use
  Company Number: ES-B.I. PHARMACEUTICALS,INC./RIDGEFIELD-2020-12-032536

PATIENT
  Age: 77 Year
  Sex: Male
  Weight: 72 kg

DRUGS (11)
  1. ATORVASTATINA [ATORVASTATIN] [Concomitant]
     Active Substance: ATORVASTATIN
     Indication: HYPERCHOLESTEROLAEMIA
     Route: 065
     Dates: start: 20100629
  2. SYNJARDY [Suspect]
     Active Substance: EMPAGLIFLOZIN\METFORMIN HYDROCHLORIDE
     Indication: TYPE 2 DIABETES MELLITUS
     Dosage: 1 TABLET EVERY 12 HOURS?STRENGTH:  5MG/1000MG
     Route: 065
     Dates: start: 20200205
  3. CLOPIDOGREL [Concomitant]
     Active Substance: CLOPIDOGREL BISULFATE
     Indication: PERIPHERAL ISCHAEMIA
     Route: 065
     Dates: start: 20200506
  4. LIDALTRIN DIU [Concomitant]
     Active Substance: HYDROCHLOROTHIAZIDE\QUINAPRIL HYDROCHLORIDE
     Indication: HYPERTENSION
     Route: 065
     Dates: start: 20200225
  5. LYRICA [Concomitant]
     Active Substance: PREGABALIN
     Indication: INTERMITTENT CLAUDICATION
     Dosage: 3 CAPSULE AT DINNER, 2 CAPSULE AT BREAKFAST
     Route: 065
     Dates: start: 20200403
  6. DOVIDA [Concomitant]
     Active Substance: SULODEXIDE
     Indication: PERIPHERAL VENOUS DISEASE
     Route: 065
     Dates: start: 20200604
  7. OMEPRAZOL [OMEPRAZOLE] [Concomitant]
     Active Substance: OMEPRAZOLE
     Indication: PROPHYLAXIS
     Route: 065
     Dates: start: 20171129
  8. METAMIZOL [Concomitant]
     Active Substance: METAMIZOLE SODIUM
     Indication: ANGINA PECTORIS
     Route: 065
     Dates: start: 20200506
  9. SEGURIL [Concomitant]
     Active Substance: FUROSEMIDE
     Indication: OEDEMA
     Route: 065
     Dates: start: 20200323
  10. FENTANILO [FENTANYL] [Concomitant]
     Indication: ISCHAEMIA
     Dosage: STRENGTH: 50 MCG/5MG
     Route: 065
     Dates: start: 20200522
  11. ADIRO [Concomitant]
     Active Substance: ASPIRIN
     Indication: APHASIA
     Route: 065
     Dates: start: 20171129

REACTIONS (2)
  - Necrosis ischaemic [Not Recovered/Not Resolved]
  - Diabetic foot [Not Recovered/Not Resolved]

NARRATIVE: CASE EVENT DATE: 20200325
